FAERS Safety Report 17895770 (Version 2)
Quarter: 2020Q3

REPORT INFORMATION
  Report Type: Report from Study
  Country: BR (occurrence: BR)
  Receive Date: 20200615
  Receipt Date: 20200708
  Transmission Date: 20201103
  Serious: Yes (Other)
  Sender: FDA-Public Use
  Company Number: BR-JNJFOC-20170915067

PATIENT
  Sex: Female
  Weight: 75 kg

DRUGS (10)
  1. MIOSAN [Concomitant]
     Active Substance: CYCLOBENZAPRINE
     Indication: FIBROMYALGIA
  2. DULOXETINE HYDROCHLORIDE. [Concomitant]
     Active Substance: DULOXETINE HYDROCHLORIDE
     Indication: FIBROMYALGIA
  3. MORPHINE [Concomitant]
     Active Substance: MORPHINE
     Indication: PAIN
  4. VITAMIN D                          /00107901/ [Concomitant]
     Active Substance: ERGOCALCIFEROL
  5. METHOTREXATE. [Concomitant]
     Active Substance: METHOTREXATE
     Indication: PSORIATIC ARTHROPATHY
  6. NORIPURUM [Concomitant]
     Active Substance: IRON POLYMALTOSE
     Indication: MINERAL SUPPLEMENTATION
  7. IRON [Concomitant]
     Active Substance: IRON
  8. PYRIDOXAMINE HYDROCHLORIDE\THIAMINE HYDROCHLORIDE\CYANOCOBALAMIN [Concomitant]
     Active Substance: CYANOCOBALAMIN\PYRIDOXAMINE HYDROCHLORIDE\THIAMINE HYDROCHLORIDE
     Indication: VITAMIN SUPPLEMENTATION
  9. SIMPONI [Suspect]
     Active Substance: GOLIMUMAB
     Indication: PSORIATIC ARTHROPATHY
     Route: 058
     Dates: start: 20170523, end: 201710
  10. METHOTREXATE. [Concomitant]
     Active Substance: METHOTREXATE
     Indication: PSORIASIS
     Dosage: 8 TABLETS PER WEEK

REACTIONS (7)
  - Inflammation [Unknown]
  - Nasopharyngitis [Unknown]
  - Drug ineffective [Not Recovered/Not Resolved]
  - Hyporeflexia [Unknown]
  - Pyrexia [Unknown]
  - Balance disorder [Unknown]
  - Psoriatic arthropathy [Unknown]

NARRATIVE: CASE EVENT DATE: 2017
